FAERS Safety Report 6528397 (Version 21)
Quarter: 2016Q1

REPORT INFORMATION
  Report Type: Spontaneous
  Country: US (occurrence: US)
  Receive Date: 20080116
  Receipt Date: 20160307
  Transmission Date: 20160526
  Serious: Yes (Hospitalization, Other)
  Sender: FDA-Public Use
  Company Number: US-ROCHE-527504

PATIENT
  Age: 17 Year
  Sex: Female
  Weight: 73.5 kg

DRUGS (1)
  1. ACCUTANE [Suspect]
     Active Substance: ISOTRETINOIN
     Indication: ACNE CYSTIC
     Dosage: PATIENT FILLED ACCUTANE 40 MG CAPS ON 02NOV94, 27DEC94, 07FEB95 AND 17APR95.
     Route: 065
     Dates: start: 19941102, end: 19950617

REACTIONS (23)
  - Musculoskeletal disorder [Unknown]
  - Pharyngitis streptococcal [Unknown]
  - Inflammatory bowel disease [Unknown]
  - Ulcerative keratitis [Unknown]
  - Bronchitis [Unknown]
  - Depression [Unknown]
  - Anal fissure [Unknown]
  - Anxiety [Unknown]
  - Pleurisy [Unknown]
  - Peptic ulcer [Unknown]
  - Weight decreased [Recovering/Resolving]
  - Rheumatoid arthritis [Unknown]
  - Cholelithiasis [Unknown]
  - Crohn^s disease [Unknown]
  - Intestinal obstruction [Unknown]
  - Colitis ulcerative [Recovering/Resolving]
  - Blindness [Unknown]
  - Fibromyalgia [Unknown]
  - Chronic sinusitis [Unknown]
  - Adenoidal hypertrophy [Recovered/Resolved]
  - Intervertebral disc degeneration [Unknown]
  - Tonsillectomy [Recovered/Resolved]
  - Lip dry [Unknown]

NARRATIVE: CASE EVENT DATE: 19950209
